FAERS Safety Report 24070880 (Version 1)
Quarter: 2024Q3

REPORT INFORMATION
  Report Type: Report from Study
  Country: RS (occurrence: RS)
  Receive Date: 20240710
  Receipt Date: 20240710
  Transmission Date: 20241017
  Serious: No
  Sender: ROCHE
  Company Number: RS-ROCHE-3515466

PATIENT
  Age: 74 Year
  Sex: Female
  Weight: 84.0 kg

DRUGS (11)
  1. ALECTINIB [Suspect]
     Active Substance: ALECTINIB
     Indication: Lung cancer metastatic
     Route: 048
     Dates: start: 20220309
  2. GLICLAZIDE [Concomitant]
     Active Substance: GLICLAZIDE
     Indication: Type 2 diabetes mellitus
     Route: 048
  3. ACENOCOUMAROL [Concomitant]
     Active Substance: ACENOCOUMAROL
     Indication: Atrial fibrillation
     Route: 048
  4. DIAZEPAM [Concomitant]
     Active Substance: DIAZEPAM
     Indication: Neurosis
     Route: 048
  5. FOLAN TABLET [Concomitant]
     Indication: Anaemia
     Route: 048
     Dates: start: 20220517
  6. METFORMIN HYDROCHLORIDE [Concomitant]
     Active Substance: METFORMIN HYDROCHLORIDE
     Indication: Type 2 diabetes mellitus
     Route: 048
     Dates: start: 20220908
  7. SPIRONOLACTONE [Concomitant]
     Active Substance: SPIRONOLACTONE
     Route: 048
     Dates: start: 20220908
  8. LASIX [Concomitant]
     Active Substance: FUROSEMIDE
     Route: 048
     Dates: start: 20220908
  9. HERBALS\SILYBUM MARIANUM WHOLE [Concomitant]
     Active Substance: HERBALS\SILYBUM MARIANUM WHOLE
     Route: 048
     Dates: start: 20230613
  10. TENSEC [Concomitant]
     Indication: Bradyarrhythmia
     Route: 048
     Dates: start: 20230811, end: 20240213
  11. REFERUM [Concomitant]
     Indication: Anaemia
     Route: 048
     Dates: start: 20220517

REACTIONS (3)
  - Hypertension [Not Recovered/Not Resolved]
  - Fatigue [Recovered/Resolved]
  - Pain in extremity [Recovered/Resolved]

NARRATIVE: CASE EVENT DATE: 20231101
